FAERS Safety Report 14758272 (Version 1)
Quarter: 2018Q2

REPORT INFORMATION
  Report Type: Spontaneous
  Country: US (occurrence: US)
  Receive Date: 20180409
  Receipt Date: 20180409
  Transmission Date: 20180711
  Serious: Yes (Disabling)
  Sender: FDA-Public Use
  Company Number: None

PATIENT
  Age: 61 Year
  Sex: Female
  Weight: 56.25 kg

DRUGS (1)
  1. ANASTROZOLE. [Suspect]
     Active Substance: ANASTROZOLE
     Indication: HORMONE SUPPRESSION THERAPY
     Route: 048
     Dates: start: 20170811, end: 20171010

REACTIONS (4)
  - Asthenia [None]
  - Mental impairment [None]
  - Hyperacusis [None]
  - Sleep disorder [None]

NARRATIVE: CASE EVENT DATE: 20170911
